FAERS Safety Report 11556530 (Version 2)
Quarter: 2015Q3

REPORT INFORMATION
  Report Type: Report from Study
  Country: US (occurrence: US)
  Receive Date: 20150925
  Receipt Date: 20150929
  Transmission Date: 20151125
  Serious: Yes (Other)
  Sender: FDA-Public Use
  Company Number: US-BAXALTA-2015BAX011847

PATIENT
  Sex: Female
  Weight: 92.5 kg

DRUGS (4)
  1. GAMMAGARD LIQUID [Suspect]
     Active Substance: HUMAN IMMUNOGLOBULIN G
     Dosage: 15 G, 1X A WEEK
     Route: 058
     Dates: start: 20150304
  2. GAMMAGARD LIQUID [Suspect]
     Active Substance: HUMAN IMMUNOGLOBULIN G
     Dosage: 20 G, 1X A WEEK
     Route: 058
     Dates: start: 20150917
  3. GAMMAGARD LIQUID [Suspect]
     Active Substance: HUMAN IMMUNOGLOBULIN G
     Dosage: 17 G, 1X A WEEK
     Route: 058
     Dates: start: 201504
  4. GAMMAGARD LIQUID [Suspect]
     Active Substance: HUMAN IMMUNOGLOBULIN G
     Indication: IMMUNODEFICIENCY COMMON VARIABLE
     Dosage: 15 G, 1X A WEEK
     Route: 058
     Dates: start: 20121220

REACTIONS (8)
  - Infection [Unknown]
  - Fatigue [Not Recovered/Not Resolved]
  - Bronchitis [Not Recovered/Not Resolved]
  - Malaise [Unknown]
  - Immunoglobulins abnormal [Unknown]
  - Upper respiratory tract infection [Not Recovered/Not Resolved]
  - Hypersensitivity [Unknown]
  - Cough [Recovered/Resolved]

NARRATIVE: CASE EVENT DATE: 2015
